FAERS Safety Report 10045199 (Version 1)
Quarter: 2014Q1

REPORT INFORMATION
  Report Type: Spontaneous
  Country: US (occurrence: None)
  Receive Date: 20140326
  Receipt Date: 20140326
  Transmission Date: 20141002
  Serious: Yes (Death)
  Sender: FDA-Public Use
  Company Number: UTC-046028

PATIENT
  Age: 64 Year
  Sex: Female
  Weight: 90.26 kg

DRUGS (2)
  1. REMODULIN [Suspect]
     Indication: COR PULMONALE CHRONIC
     Dosage: (1 IN 1 MIN),SUBCUTANEOUS
     Route: 058
     Dates: start: 20130925
  2. COUMADIN [Concomitant]

REACTIONS (1)
  - Death [None]
